FAERS Safety Report 10864017 (Version 3)
Quarter: 2015Q2

REPORT INFORMATION
  Report Type: Spontaneous
  Country: US (occurrence: US)
  Receive Date: 20150224
  Receipt Date: 20150420
  Transmission Date: 20150821
  Serious: Yes (Death, Hospitalization)
  Sender: FDA-Public Use
  Company Number: US-ACTELION-A-NJ2015-113213

PATIENT
  Age: 48 Year
  Sex: Male

DRUGS (12)
  1. OCTREOTIDE [Concomitant]
     Active Substance: OCTREOTIDE
  2. VELETRI [Suspect]
     Active Substance: EPOPROSTENOL
     Indication: PULMONARY HYPERTENSION
     Dosage: 12 NG/KG, PER MIN
     Route: 042
     Dates: start: 20150202, end: 20150219
  3. PRILOSEC [Concomitant]
     Active Substance: OMEPRAZOLE MAGNESIUM
  4. FUROSEMIDE. [Concomitant]
     Active Substance: FUROSEMIDE
  5. DILTIAZEM [Concomitant]
     Active Substance: DILTIAZEM
  6. OPSUMIT [Suspect]
     Active Substance: MACITENTAN
     Indication: PULMONARY HYPERTENSION
     Dosage: 10 MG, UNK
     Route: 048
     Dates: start: 20140317
  7. NAPROXEN. [Concomitant]
     Active Substance: NAPROXEN
  8. FOLIC ACID. [Concomitant]
     Active Substance: FOLIC ACID
  9. SILDENAFIL. [Concomitant]
     Active Substance: SILDENAFIL
  10. LISINOPRIL. [Concomitant]
     Active Substance: LISINOPRIL
  11. CIPRO [Concomitant]
     Active Substance: CIPROFLOXACIN HYDROCHLORIDE
  12. PREDNISONE. [Concomitant]
     Active Substance: PREDNISONE

REACTIONS (6)
  - Dyspnoea [Unknown]
  - Pulmonary hypertension [Unknown]
  - Chest discomfort [Unknown]
  - Cardiac arrest [Fatal]
  - Body temperature increased [Unknown]
  - Malaise [Unknown]

NARRATIVE: CASE EVENT DATE: 20150219
